FAERS Safety Report 4476677-1 (Version None)
Quarter: 2004Q4

REPORT INFORMATION
  Report Type: 
  Country: None (occurrence: None)
  Receive Date: 20041015
  Receipt Date: 20041015
  Transmission Date: 20050328
  Serious: Yes (Life-Threatening, Hospitalization)
  Sender: FDA-Public Use
  Company Number: None

PATIENT
  Sex: Male
  Weight: 99.7913 kg

DRUGS (2)
  1. SULINDAC [Suspect]
     Indication: LOCALISED INFECTION
     Dosage: TWO-FOUR TIMES A DAY ORAL
     Route: 048
  2. SULINDAC [Suspect]
     Indication: OEDEMA PERIPHERAL
     Dosage: TWO-FOUR TIMES A DAY ORAL
     Route: 048

REACTIONS (6)
  - BLOOD PRESSURE ABNORMAL [None]
  - CARDIAC DISORDER [None]
  - CARDIAC FAILURE CONGESTIVE [None]
  - FLUID RETENTION [None]
  - HAEMORRHAGE [None]
  - ULCER [None]
